FAERS Safety Report 19111190 (Version 2)
Quarter: 2021Q2

REPORT INFORMATION
  Report Type: Spontaneous
  Country: US (occurrence: US)
  Receive Date: 20210408
  Receipt Date: 20210420
  Transmission Date: 20210717
  Serious: No
  Sender: FDA-Public Use
  Company Number: US-TEVA-2021-US-1897777

PATIENT
  Age: 73 Year
  Sex: Male

DRUGS (2)
  1. PRAVASTATIN SODIUM TEVA [Suspect]
     Active Substance: PRAVASTATIN SODIUM
     Dosage: TAKING THIS MEDICATION FOR A 8 YEARS
     Route: 065
     Dates: end: 2021
  2. PRAVASTATIN SODIUM TEVA [Suspect]
     Active Substance: PRAVASTATIN SODIUM
     Route: 065
     Dates: start: 202102

REACTIONS (4)
  - Myalgia [Recovered/Resolved]
  - Abdominal distension [Recovered/Resolved]
  - Abdominal discomfort [Recovered/Resolved]
  - Muscular weakness [Recovered/Resolved]

NARRATIVE: CASE EVENT DATE: 202102
